FAERS Safety Report 11098796 (Version 11)
Quarter: 2019Q1

REPORT INFORMATION
  Report Type: Spontaneous
  Country: JP (occurrence: JP)
  Receive Date: 20150508
  Receipt Date: 20190131
  Transmission Date: 20190417
  Serious: Yes (Hospitalization)
  Sender: FDA-Public Use
  Company Number: PHJP2015JP006329

PATIENT
  Age: 33 Year
  Sex: Female
  Weight: 70 kg

DRUGS (9)
  1. CORTRIL [Concomitant]
     Active Substance: HYDROCORTISONE
     Indication: HYPOPITUITARISM
     Dosage: 10 MG, QD
     Route: 048
  2. AZILVA [Concomitant]
     Active Substance: AZILSARTAN KAMEDOXOMIL
     Indication: HYPERTENSION
     Dosage: 20 MG, QD
     Route: 048
  3. SEIBULE [Concomitant]
     Active Substance: MIGLITOL
     Indication: DIABETES MELLITUS
     Dosage: 50 MG, TID
     Route: 048
  4. ATORVASTATIN [Concomitant]
     Active Substance: ATORVASTATIN
     Indication: DYSLIPIDAEMIA
     Dosage: 20 MG, QD
     Route: 048
  5. SANDOSTATINA LAR IM INJECTION [Suspect]
     Active Substance: OCTREOTIDE ACETATE
     Indication: SECRETORY ADENOMA OF PITUITARY
     Dosage: 20 MG, QD
     Route: 030
     Dates: start: 20150313, end: 20150313
  6. CABASER [Concomitant]
     Active Substance: CABERGOLINE
     Indication: ACROMEGALY
     Dosage: 1.75 MG, QW
     Route: 048
     Dates: start: 201202
  7. THYRADIN-S [Concomitant]
     Active Substance: LEVOTHYROXINE
     Indication: HYPOPITUITARISM
     Dosage: 75 UG, QD
     Route: 048
  8. MIGLITOL. [Concomitant]
     Active Substance: MIGLITOL
     Indication: HYPERGLYCAEMIA
     Dosage: 150 MG, QD
     Route: 048
     Dates: start: 20150311
  9. MAGLAX [Concomitant]
     Active Substance: MAGNESIUM OXIDE
     Indication: CONSTIPATION
     Dosage: 250 MG, BID
     Route: 048

REACTIONS (8)
  - Thirst [Unknown]
  - Polydipsia [Unknown]
  - Weight decreased [Unknown]
  - Polyuria [Unknown]
  - Diabetic ketoacidosis [Recovered/Resolved]
  - Malaise [Unknown]
  - Impaired insulin secretion [Unknown]
  - Feeding disorder [Unknown]

NARRATIVE: CASE EVENT DATE: 20150327
